FAERS Safety Report 5651007-8 (Version None)
Quarter: 2008Q1

REPORT INFORMATION
  Report Type: 
  Country: None (occurrence: None)
  Receive Date: 20080305
  Receipt Date: 20080227
  Transmission Date: 20080703
  Serious: Yes (Death, Hospitalization)
  Sender: FDA-Public Use
  Company Number: A0388522A

PATIENT
  Age: 71 Year
  Sex: Male

DRUGS (2)
  1. ADVAIR DISKUS 100/50 [Suspect]
     Indication: ASTHMA
     Route: 055
     Dates: start: 20020522, end: 20020926
  2. PREDNISONE TAB [Concomitant]
     Indication: DRUG USE FOR UNKNOWN INDICATION
     Dates: start: 20020701

REACTIONS (13)
  - ANOXIC ENCEPHALOPATHY [None]
  - CARDIAC ARREST [None]
  - CARDIAC FAILURE CONGESTIVE [None]
  - CARDIOMEGALY [None]
  - COMA [None]
  - HYPOXIC ENCEPHALOPATHY [None]
  - LUNG HYPERINFLATION [None]
  - MYOCARDIAL INFARCTION [None]
  - NERVOUS SYSTEM DISORDER [None]
  - PNEUMONIA ASPIRATION [None]
  - PULMONARY OEDEMA [None]
  - RESPIRATORY ARREST [None]
  - VENTRICULAR FIBRILLATION [None]
